FAERS Safety Report 9526123 (Version 2)
Quarter: 2013Q3

REPORT INFORMATION
  Report Type: Report from Study
  Country: US (occurrence: US)
  Receive Date: 20130916
  Receipt Date: 20130916
  Transmission Date: 20140515
  Serious: Yes (Hospitalization)
  Sender: FDA-Public Use
  Company Number: US-ACTELION-A-NJ2013-87336

PATIENT
  Age: 59 Year
  Sex: Female

DRUGS (10)
  1. TRACLEER [Suspect]
     Indication: PULMONARY ARTERIAL HYPERTENSION
     Dosage: 125 MG, BID
     Route: 048
     Dates: start: 20130711, end: 20130810
  2. TRACLEER [Suspect]
     Dosage: 62.5 MG, BID
     Route: 048
     Dates: start: 201301
  3. PROZAC [Concomitant]
     Dosage: 20 MG, UNK
  4. FENTANYL ABZ [Concomitant]
     Dosage: 50 MEQ, Q 72 HRS.
  5. LEVOTHYROXINE [Concomitant]
     Dosage: 50 MCG, QD
  6. METHOCARBAMOL [Concomitant]
     Dosage: 750 MG, TID
  7. AMBIEN [Concomitant]
     Dosage: 10 MG, QD
  8. VITAMIN D [Concomitant]
     Dosage: 50000 U, Q1WEEK
  9. PRILOSEC [Concomitant]
     Dosage: 20 MG, UNK
  10. PEPCID [Concomitant]
     Dosage: 10 MG, UNK

REACTIONS (11)
  - Vomiting [Unknown]
  - Hypotension [Recovered/Resolved]
  - Dizziness [Recovered/Resolved]
  - Liver function test abnormal [Recovered/Resolved]
  - Local swelling [Unknown]
  - Pyrexia [Unknown]
  - Chills [Unknown]
  - Weight increased [Unknown]
  - Gait disturbance [Unknown]
  - Swelling [Recovered/Resolved]
  - Fall [Recovered/Resolved]
